FAERS Safety Report 9322626 (Version 2)
Quarter: 2014Q2

REPORT INFORMATION
  Report Type: Spontaneous
  Country: US (occurrence: US)
  Receive Date: 20130531
  Receipt Date: 20140613
  Transmission Date: 20141212
  Serious: Yes (Death, Other)
  Sender: FDA-Public Use
  Company Number: US-RB-054446-13

PATIENT
  Age: 23 Year
  Sex: Female

DRUGS (3)
  1. SUBOXONE FILM [Suspect]
     Indication: DRUG DEPENDENCE
     Dosage: SUBOXONE FILM; TOOK 16 MG ON THE FIRST DAY; UNKNOWN UNIT DOSE STRENGTH
     Route: 060
     Dates: start: 20130513, end: 20130514
  2. TRAZADONE [Suspect]
     Indication: SLEEP DISORDER
     Route: 048
     Dates: start: 20130506
  3. WELLBUTRIN [Suspect]
     Indication: PRODUCT USED FOR UNKNOWN INDICATION
     Dosage: DOSING DETAILS UNKNOWN
     Route: 048
     Dates: start: 20130506

REACTIONS (7)
  - Death [Fatal]
  - Lethargy [Recovered/Resolved]
  - Agitation [Recovered/Resolved]
  - Dysarthria [Recovered/Resolved]
  - Gait disturbance [Recovered/Resolved]
  - Insomnia [Recovered/Resolved]
  - Condition aggravated [Recovered/Resolved]
